FAERS Safety Report 18472483 (Version 1)
Quarter: 2020Q4

REPORT INFORMATION
  Report Type: Spontaneous
  Country: US (occurrence: US)
  Receive Date: 20201105
  Receipt Date: 20201105
  Transmission Date: 20210114
  Serious: Yes (Death)
  Sender: FDA-Public Use
  Company Number: None

PATIENT
  Age: 86 Year
  Sex: Female
  Weight: 68.49 kg

DRUGS (2)
  1. N/A [Concomitant]
     Active Substance: UNSPECIFIED INGREDIENT
  2. REMDESIVIR. [Suspect]
     Active Substance: REMDESIVIR

REACTIONS (7)
  - Acute myocardial infarction [None]
  - Respiratory acidosis [None]
  - Blood glucose decreased [None]
  - Mental status changes [None]
  - Unresponsive to stimuli [None]
  - SARS-CoV-2 test positive [None]
  - Hypercapnia [None]
